FAERS Safety Report 6503706-3 (Version None)
Quarter: 2009Q4

REPORT INFORMATION
  Report Type: 
  Country: None (occurrence: None)
  Receive Date: 20091217
  Receipt Date: 20091207
  Transmission Date: 20100525
  Serious: Yes (Hospitalization, Other)
  Sender: FDA-Public Use
  Company Number: PHMT2006CA01785

PATIENT
  Sex: Female

DRUGS (4)
  1. SANDOSTATIN LAR [Suspect]
     Indication: CARCINOID TUMOUR
     Dosage: 20 MG EVERY FOUR WEEKS
     Route: 030
     Dates: start: 20060516, end: 20060516
  2. SANDOSTATIN LAR [Suspect]
     Dosage: 30 MG Q 4WEEKS
  3. SANDOSTATIN LAR [Suspect]
     Dosage: 20 MG EVERY 4 WEEKS
     Route: 030
     Dates: start: 20070407
  4. POTASSIUM [Concomitant]

REACTIONS (4)
  - FATIGUE [None]
  - HEPATECTOMY [None]
  - HEPATIC NEOPLASM MALIGNANT RESECTABLE [None]
  - THERAPEUTIC EMBOLISATION [None]
